FAERS Safety Report 10337171 (Version 1)
Quarter: 2014Q3

REPORT INFORMATION
  Report Type: Spontaneous
  Country: ES (occurrence: GB)
  Receive Date: 20140723
  Receipt Date: 20140723
  Transmission Date: 20150326
  Serious: Yes (Other)
  Sender: FDA-Public Use
  Company Number: GB-FRI-1000069216

PATIENT
  Age: 73 Year
  Sex: Female

DRUGS (1)
  1. ACLIDINIUM [Suspect]
     Active Substance: ACLIDINIUM BROMIDE
     Route: 055

REACTIONS (2)
  - Dry skin [Not Recovered/Not Resolved]
  - Skin tightness [Not Recovered/Not Resolved]
